FAERS Safety Report 19040548 (Version 2)
Quarter: 2021Q1

REPORT INFORMATION
  Report Type: Report from Study
  Country: PL (occurrence: PL)
  Receive Date: 20210322
  Receipt Date: 20210323
  Transmission Date: 20210420
  Serious: Yes (Hospitalization)
  Sender: FDA-Public Use
  Company Number: PL-PFIZER INC-2021269051

PATIENT
  Age: 66 Year
  Sex: Male

DRUGS (16)
  1. ENZALUTAMIDE [Suspect]
     Active Substance: ENZALUTAMIDE
     Indication: PROSTATE CANCER METASTATIC
     Dosage: 160.0 MG, 1X/DAY
     Route: 048
     Dates: start: 20190729, end: 20191020
  2. ENZALUTAMIDE [Suspect]
     Active Substance: ENZALUTAMIDE
     Dosage: 160.0 MG, 1X/DAY
     Route: 048
     Dates: start: 20191127, end: 20191127
  3. METFORMAX [Concomitant]
     Active Substance: METFORMIN HYDROCHLORIDE
     Indication: TYPE 2 DIABETES MELLITUS
     Dosage: 850 MG, 3X/DAY
     Route: 048
  4. ENZALUTAMIDE [Suspect]
     Active Substance: ENZALUTAMIDE
     Dosage: 160.0 MG, 1X/DAY
     Route: 048
     Dates: start: 20200224, end: 20210309
  5. TALAZOPARIB. [Suspect]
     Active Substance: TALAZOPARIB
     Indication: PROSTATE CANCER METASTATIC
     Dosage: UNK, 1X/DAY
     Route: 048
     Dates: start: 20190729, end: 20191020
  6. TALAZOPARIB. [Suspect]
     Active Substance: TALAZOPARIB
     Dosage: UNK, 1X/DAY
     Route: 048
     Dates: start: 20200224, end: 20210309
  7. TRITACE [Concomitant]
     Active Substance: RAMIPRIL
     Indication: HYPERTENSION
     Dosage: 10 MG, 1X/DAY
     Route: 048
  8. ENZALUTAMIDE [Suspect]
     Active Substance: ENZALUTAMIDE
     Dosage: 160 MG, 1X/DAY
     Route: 048
     Dates: start: 20191223, end: 20200209
  9. TALAZOPARIB. [Suspect]
     Active Substance: TALAZOPARIB
     Dosage: UNK, 1X/DAY
     Route: 048
     Dates: start: 20191028, end: 20191117
  10. TALAZOPARIB. [Suspect]
     Active Substance: TALAZOPARIB
     Dosage: UNK, 1X/DAY
     Route: 048
     Dates: start: 20191223, end: 20200209
  11. WARFIN [Concomitant]
     Active Substance: WARFARIN
     Indication: ATRIAL FIBRILLATION
     Dosage: 3 MG, 1X/DAY
     Route: 048
  12. AMARYL [Concomitant]
     Active Substance: GLIMEPIRIDE
     Indication: TYPE 2 DIABETES MELLITUS
     Dosage: 2 MG, 1X/DAY
     Route: 048
  13. OPAMID [Concomitant]
     Indication: HYPERTENSION
     Dosage: 1.5 MG, 1X/DAY
     Route: 048
  14. ENZALUTAMIDE [Suspect]
     Active Substance: ENZALUTAMIDE
     Dosage: 160.0 MG, 1X/DAY
     Route: 048
     Dates: start: 20191028, end: 20191117
  15. TALAZOPARIB. [Suspect]
     Active Substance: TALAZOPARIB
     Dosage: UNK, 1X/DAY
     Route: 048
     Dates: start: 20191127, end: 20191127
  16. FUROSEMIDE. [Concomitant]
     Active Substance: FUROSEMIDE
     Indication: HYPERTENSION
     Dosage: 40 MG, 1X/DAY
     Route: 048

REACTIONS (1)
  - Atrial fibrillation [Recovered/Resolved]

NARRATIVE: CASE EVENT DATE: 20210123
